FAERS Safety Report 18233286 (Version 1)
Quarter: 2020Q3

REPORT INFORMATION
  Report Type: Spontaneous
  Country: None (occurrence: US)
  Receive Date: 20200904
  Receipt Date: 20200904
  Transmission Date: 20201103
  Serious: No
  Sender: FDA-Public Use
  Company Number: US-OSMOTICA_PHARMACEUTICAL_US_LLC-POI0573202000444

PATIENT
  Age: 64 Year
  Sex: Male

DRUGS (5)
  1. OSMOLEX ER [Suspect]
     Active Substance: AMANTADINE
     Dates: start: 202007, end: 20200803
  2. SINEMET [Concomitant]
     Active Substance: CARBIDOPA\LEVODOPA
     Indication: PRODUCT USED FOR UNKNOWN INDICATION
  3. UNKNOWN DRUG FOR LIVER [Concomitant]
     Indication: LIVER DISORDER
  4. OSMOLEX ER [Suspect]
     Active Substance: AMANTADINE
     Indication: PARKINSON^S DISEASE
     Dates: start: 20200506, end: 202006
  5. UNKNOWN DRUG FOR SLEEP [Concomitant]
     Indication: SLEEP DISORDER

REACTIONS (4)
  - Constipation [Unknown]
  - Feeling cold [Recovered/Resolved]
  - Dyskinesia [Unknown]
  - Balance disorder [Recovered/Resolved]

NARRATIVE: CASE EVENT DATE: 202005
